FAERS Safety Report 8026393-4 (Version None)
Quarter: 2012Q1

REPORT INFORMATION
  Report Type: 
  Country: None (occurrence: None)
  Receive Date: 20120105
  Receipt Date: 20111227
  Transmission Date: 20120608
  Serious: Yes (Disabling, Other)
  Sender: FDA-Public Use
  Company Number: JP-ASTRAZENECA-2011SE70492

PATIENT
  Age: 24109 Day
  Sex: Male
  Weight: 37 kg

DRUGS (12)
  1. MAGNESIUM SULFATE [Concomitant]
     Indication: CONSTIPATION
     Route: 048
     Dates: start: 20111108, end: 20110101
  2. IRESSA [Suspect]
     Route: 048
     Dates: start: 20111020, end: 20111026
  3. BROTIZOLAM [Concomitant]
     Indication: INSOMNIA
     Route: 048
     Dates: start: 20111025
  4. URSO 250 [Concomitant]
     Indication: LIVER DISORDER
     Route: 048
     Dates: start: 20111015, end: 20111024
  5. IRESSA [Suspect]
     Indication: LUNG ADENOCARCINOMA
     Route: 048
     Dates: start: 20111006, end: 20111018
  6. LANSOPRAZOLE [Concomitant]
     Indication: GASTRIC ULCER
     Route: 048
     Dates: start: 20110929
  7. LAC-B [Concomitant]
     Indication: ENTEROCOLITIS
     Route: 048
     Dates: start: 20111025, end: 20111031
  8. ENTERONON-R [Concomitant]
     Indication: ENTEROCOLITIS
     Route: 048
     Dates: start: 20110929, end: 20111024
  9. TANNALBIN [Concomitant]
     Indication: ENTEROCOLITIS
     Route: 048
     Dates: start: 20110929, end: 20111031
  10. RISPERDAL [Concomitant]
     Indication: INSOMNIA
     Route: 048
     Dates: start: 20111003, end: 20111017
  11. DECADRON [Concomitant]
     Indication: RADIOTHERAPY
     Route: 048
     Dates: start: 20111017, end: 20111024
  12. LEVOFLOXACIN [Concomitant]
     Route: 048
     Dates: start: 20111031, end: 20111105

REACTIONS (4)
  - INTERSTITIAL LUNG DISEASE [None]
  - ENTEROCOLITIS [None]
  - WRONG TECHNIQUE IN DRUG USAGE PROCESS [None]
  - HEPATIC FUNCTION ABNORMAL [None]
